FAERS Safety Report 14148418 (Version 1)
Quarter: 2017Q4

REPORT INFORMATION
  Report Type: Spontaneous
  Country: BE (occurrence: BE)
  Receive Date: 20171101
  Receipt Date: 20171101
  Transmission Date: 20180321
  Serious: Yes (Other)
  Sender: FDA-Public Use
  Company Number: PHHY2017BE158290

PATIENT
  Age: 45 Year
  Sex: Female

DRUGS (1)
  1. COSENTYX [Suspect]
     Active Substance: SECUKINUMAB
     Indication: PSORIATIC ARTHROPATHY
     Dosage: 300 MG, UNK
     Route: 058

REACTIONS (5)
  - Depression [Unknown]
  - Drug effect incomplete [Unknown]
  - Thought blocking [Unknown]
  - White blood cell count decreased [Unknown]
  - Suicidal ideation [Unknown]
